FAERS Safety Report 5126431-2 (Version None)
Quarter: 2006Q4

REPORT INFORMATION
  Report Type: 
  Country: None (occurrence: None)
  Receive Date: 20061010
  Receipt Date: 20061002
  Transmission Date: 20070319
  Serious: Yes (Death, Hospitalization)
  Sender: FDA-Public Use
  Company Number: CLOF-10335

PATIENT
  Age: 68 Year
  Sex: Male
  Weight: 79.1 kg

DRUGS (8)
  1. CLOFARABINE (BLINDED) [Suspect]
     Indication: MYELOID LEUKAEMIA
     Dosage: 40 MG/M2 DAILY IV
     Route: 042
     Dates: start: 20060919, end: 20060923
  2. CYTARABINE [Suspect]
     Indication: MYELOID LEUKAEMIA
     Dosage: 1000 MG/M2 DAILY
     Dates: start: 20060919, end: 20060923
  3. LIPITOR [Concomitant]
  4. ZESTRIL [Concomitant]
  5. EFFEXOR [Concomitant]
  6. ALLOPURINOL [Concomitant]
  7. LEVOFLOXACIN [Concomitant]
  8. DIFLUCAN [Concomitant]

REACTIONS (18)
  - ACUTE MYOCARDIAL INFARCTION [None]
  - ACUTE RESPIRATORY DISTRESS SYNDROME [None]
  - BLOOD CULTURE POSITIVE [None]
  - CARDIAC FAILURE CONGESTIVE [None]
  - CARDIAC MURMUR [None]
  - CARDIOGENIC SHOCK [None]
  - CONJUNCTIVAL HAEMORRHAGE [None]
  - CORYNEBACTERIUM INFECTION [None]
  - DILATATION ATRIAL [None]
  - HYPOTENSION [None]
  - LUNG INFILTRATION [None]
  - PANCYTOPENIA [None]
  - PULMONARY HAEMORRHAGE [None]
  - PYREXIA [None]
  - TACHYCARDIA [None]
  - TRAUMATIC BRAIN INJURY [None]
  - VENTRICULAR EXTRASYSTOLES [None]
  - VOMITING [None]
